FAERS Safety Report 20628984 (Version 1)
Quarter: 2022Q1

REPORT INFORMATION
  Report Type: Spontaneous
  Country: US (occurrence: None)
  Receive Date: 20220323
  Receipt Date: 20220323
  Transmission Date: 20220424
  Serious: Yes (Hospitalization)
  Sender: FDA-Public Use
  Company Number: 2022A115336

PATIENT
  Age: 27025 Day
  Sex: Female
  Weight: 56.7 kg

DRUGS (1)
  1. SEROQUEL [Suspect]
     Active Substance: QUETIAPINE FUMARATE
     Indication: Dementia
     Route: 048
     Dates: end: 20220315

REACTIONS (6)
  - Urinary tract infection [Unknown]
  - Neuroleptic malignant syndrome [Unknown]
  - Parkinsonism [Unknown]
  - Developmental delay [Not Recovered/Not Resolved]
  - Dementia [Not Recovered/Not Resolved]
  - Parkinson^s disease [Unknown]

NARRATIVE: CASE EVENT DATE: 20220311
